FAERS Safety Report 13700706 (Version 1)
Quarter: 2017Q2

REPORT INFORMATION
  Report Type: Spontaneous
  Country: US (occurrence: US)
  Receive Date: 20170628
  Receipt Date: 20170628
  Transmission Date: 20170830
  Serious: Yes (Other)
  Sender: FDA-Public Use
  Company Number: None

PATIENT
  Age: 50 Year
  Sex: Female
  Weight: 84.44 kg

DRUGS (8)
  1. FISH OIL [Suspect]
     Active Substance: FISH OIL
  2. VENLAFAXINE XR 150 MG, 150 MG [Suspect]
     Active Substance: VENLAFAXINE HYDROCHLORIDE
     Indication: HOT FLUSH
     Route: 048
     Dates: start: 20090609, end: 20170102
  3. MELATONIN [Concomitant]
     Active Substance: MELATONIN
  4. PROBIOTIC [Concomitant]
     Active Substance: PROBIOTICS NOS
  5. LAMOTRIGINE. [Concomitant]
     Active Substance: LAMOTRIGINE
  6. VENLAFAXINE XR 150 MG, 150 MG [Suspect]
     Active Substance: VENLAFAXINE HYDROCHLORIDE
     Indication: DEPRESSION
     Route: 048
     Dates: start: 20090609, end: 20170102
  7. ALOE VERA EXTRACT [Concomitant]
  8. NEXIUM [Concomitant]
     Active Substance: ESOMEPRAZOLE MAGNESIUM

REACTIONS (25)
  - Suicidal behaviour [None]
  - Nausea [None]
  - Crying [None]
  - Colon cancer [None]
  - Abdominal distension [None]
  - Influenza like illness [None]
  - Drug ineffective [None]
  - Vision blurred [None]
  - Anger [None]
  - Paraesthesia [None]
  - Flatulence [None]
  - Fatigue [None]
  - Gastroenteritis viral [None]
  - Diarrhoea [None]
  - Ulcer [None]
  - Crohn^s disease [None]
  - Depression [None]
  - Abdominal pain [None]
  - Muscle spasms [None]
  - Withdrawal syndrome [None]
  - Weight decreased [None]
  - Insomnia [None]
  - Vertigo [None]
  - Impaired work ability [None]
  - Abdominal pain upper [None]

NARRATIVE: CASE EVENT DATE: 20170102
